FAERS Safety Report 7151719-3 (Version None)
Quarter: 2010Q4

REPORT INFORMATION
  Report Type: 
  Country: None (occurrence: None)
  Receive Date: 20101210
  Receipt Date: 20101129
  Transmission Date: 20110411
  Serious: Yes (Disabling)
  Sender: FDA-Public Use
  Company Number: PHHY2010TW82204

PATIENT
  Sex: Female

DRUGS (1)
  1. ACLASTA [Suspect]
     Indication: LOWER LIMB FRACTURE
     Dosage: 5 MG
     Route: 042

REACTIONS (5)
  - ATROPHY [None]
  - BODY HEIGHT DECREASED [None]
  - INSOMNIA [None]
  - PAIN [None]
  - WHITE BLOOD CELL COUNT DECREASED [None]
